FAERS Safety Report 15894399 (Version 1)
Quarter: 2019Q1

REPORT INFORMATION
  Report Type: Spontaneous
  Country: NZ (occurrence: NZ)
  Receive Date: 20190131
  Receipt Date: 20190131
  Transmission Date: 20190417
  Serious: Yes (Other)
  Sender: FDA-Public Use
  Company Number: NZ-SAKK-2019SA018459AA

PATIENT
  Sex: Male

DRUGS (1)
  1. LANTUS [Suspect]
     Active Substance: INSULIN GLARGINE
     Dosage: 20 U, QD

REACTIONS (3)
  - Intentional dose omission [Unknown]
  - Cardiac discomfort [Not Recovered/Not Resolved]
  - Tachycardia [Not Recovered/Not Resolved]
